FAERS Safety Report 25433809 (Version 1)
Quarter: 2025Q2

REPORT INFORMATION
  Report Type: Other
  Country: CN (occurrence: CN)
  Receive Date: 20250613
  Receipt Date: 20250613
  Transmission Date: 20250716
  Serious: Yes (Life-Threatening)
  Sender: PARATEK PHARMACEUTICALS
  Company Number: CN-PARATEK PHARMACEUTICALS, INC.-2025PTK00694

PATIENT
  Age: 91 Year
  Sex: Male

DRUGS (4)
  1. NUZYRA [Suspect]
     Active Substance: OMADACYCLINE
     Indication: Pneumonia
     Dosage: 0.2 G, QD
     Route: 041
     Dates: start: 20250314, end: 20250314
  2. NUZYRA [Suspect]
     Active Substance: OMADACYCLINE
     Dosage: 0.1 G, QD
     Route: 041
     Dates: start: 20250315, end: 20250327
  3. AVIBACTAM SODIUM\CEFTAZIDIME [Suspect]
     Active Substance: AVIBACTAM SODIUM\CEFTAZIDIME
     Indication: Pneumonia
     Dosage: 2.5 G, TID
     Route: 041
     Dates: start: 20250305, end: 20250317
  4. PIPERACILLIN SODIUM\TAZOBACTAM SODIUM [Suspect]
     Active Substance: PIPERACILLIN SODIUM\TAZOBACTAM SODIUM
     Indication: Pneumonia
     Dosage: 4.5 G, TID
     Route: 041
     Dates: start: 20250321, end: 20250331

REACTIONS (1)
  - Platelet count decreased [Recovered/Resolved]

NARRATIVE: CASE EVENT DATE: 20250314
